FAERS Safety Report 5038778-9 (Version None)
Quarter: 2006Q2

REPORT INFORMATION
  Report Type: 
  Country: None (occurrence: None)
  Receive Date: 20060601
  Receipt Date: 20060112
  Transmission Date: 20061013
  Serious: No
  Sender: FDA-Public Use
  Company Number: 2005PV003621

PATIENT
  Age: 74 Year
  Sex: Female
  Weight: 90.7194 kg

DRUGS (11)
  1. BYETTA [Suspect]
     Indication: DIABETES MELLITUS NON-INSULIN-DEPENDENT
     Dosage: SEE IMAGE
     Route: 058
     Dates: start: 20050801, end: 20050101
  2. BYETTA [Suspect]
     Indication: DIABETES MELLITUS NON-INSULIN-DEPENDENT
     Dosage: SEE IMAGE
     Route: 058
     Dates: start: 20051101, end: 20051201
  3. BYETTA [Suspect]
     Indication: DIABETES MELLITUS NON-INSULIN-DEPENDENT
     Dosage: SEE IMAGE
     Route: 058
     Dates: start: 20051012
  4. BYETTA [Suspect]
     Indication: DIABETES MELLITUS NON-INSULIN-DEPENDENT
     Dosage: SEE IMAGE
     Route: 058
     Dates: start: 20051201
  5. GLUCOTROL [Concomitant]
  6. AVANDIA [Concomitant]
  7. LITHIUM CARBONATE [Concomitant]
  8. DETROL [Concomitant]
  9. LIPITOR [Concomitant]
  10. MULTIVIT [Concomitant]
  11. GLUCOPHAGE [Concomitant]

REACTIONS (15)
  - BLOOD GLUCOSE INCREASED [None]
  - COUGH [None]
  - DECREASED APPETITE [None]
  - DIARRHOEA [None]
  - DRUG EFFECT DECREASED [None]
  - EARLY SATIETY [None]
  - FOOD CRAVING [None]
  - HEADACHE [None]
  - HICCUPS [None]
  - MEDICATION ERROR [None]
  - NASOPHARYNGITIS [None]
  - NAUSEA [None]
  - RHINORRHOEA [None]
  - STOMACH DISCOMFORT [None]
  - WEIGHT DECREASED [None]
